FAERS Safety Report 10984414 (Version 1)
Quarter: 2015Q2

REPORT INFORMATION
  Report Type: Spontaneous
  Country: BG (occurrence: BG)
  Receive Date: 20150403
  Receipt Date: 20150403
  Transmission Date: 20150821
  Serious: Yes (Hospitalization)
  Sender: FDA-Public Use
  Company Number: BG-ASTRAZENECA-2015SE27704

PATIENT
  Age: 78 Year
  Sex: Male
  Weight: 75 kg

DRUGS (6)
  1. BRILIQUE [Suspect]
     Active Substance: TICAGRELOR
     Indication: ANGINA PECTORIS
     Route: 048
     Dates: start: 2014
  2. CLOPIDOGREL/ACETYLSALICYLIC ACID [Concomitant]
     Dosage: 75 MG/100 MG FOR 12 MONTHS
  3. RAMIPRIL. [Concomitant]
     Active Substance: RAMIPRIL
  4. ACETYLSALICYLIC ACID [Concomitant]
     Active Substance: ASPIRIN
  5. AMLODIPINE [Concomitant]
     Active Substance: AMLODIPINE BESYLATE
  6. CRESTOR [Suspect]
     Active Substance: ROSUVASTATIN CALCIUM
     Route: 048
     Dates: start: 2012

REACTIONS (2)
  - Angina pectoris [Unknown]
  - Chronic obstructive pulmonary disease [Unknown]
